FAERS Safety Report 13937174 (Version 6)
Quarter: 2017Q4

REPORT INFORMATION
  Report Type: Spontaneous
  Country: BR (occurrence: BR)
  Receive Date: 20170905
  Receipt Date: 20171024
  Transmission Date: 20180320
  Serious: Yes (Death)
  Sender: FDA-Public Use
  Company Number: BR-SA-2017SA162842

PATIENT
  Age: 32 Year
  Sex: Male
  Weight: 75 kg

DRUGS (13)
  1. FUROSEMIDE. [Concomitant]
     Active Substance: FUROSEMIDE
     Route: 065
  2. THYMOGLOBULINE [Suspect]
     Active Substance: LAPINE T-LYMPHOCYTE IMMUNE GLOBULIN
     Indication: PANCREAS TRANSPLANT
     Dosage: STRENGTH: 25 MG
     Route: 065
     Dates: start: 20170515, end: 20170516
  3. BROMAZEPAM [Concomitant]
     Active Substance: BROMAZEPAM
     Route: 065
  4. CLAFORAN [Concomitant]
     Active Substance: CEFOTAXIME SODIUM
     Route: 065
     Dates: start: 2017
  5. THYMOGLOBULINE [Suspect]
     Active Substance: LAPINE T-LYMPHOCYTE IMMUNE GLOBULIN
     Indication: RENAL TRANSPLANT
     Dosage: STRENGTH: 25 MG
     Route: 065
     Dates: start: 20170515, end: 20170516
  6. VANCOMYCIN [Concomitant]
     Active Substance: VANCOMYCIN
     Route: 065
     Dates: start: 2017
  7. ATENOLOL. [Concomitant]
     Active Substance: ATENOLOL
     Route: 065
  8. PURAN [Concomitant]
     Active Substance: LEVOTHYROXINE SODIUM
     Route: 065
  9. ERYTHROPOIETIN [Concomitant]
     Active Substance: ERYTHROPOIETIN
     Route: 065
  10. AMLODIPINE [Concomitant]
     Active Substance: AMLODIPINE BESYLATE
     Route: 065
  11. METHYLDOPA. [Concomitant]
     Active Substance: METHYLDOPA
     Route: 065
  12. ZOLTEC [Concomitant]
     Active Substance: FLUCONAZOLE
     Route: 065
     Dates: start: 2017
  13. SORCAL [Concomitant]
     Route: 065
     Dates: start: 20170515

REACTIONS (17)
  - Cardio-respiratory arrest [Fatal]
  - Haemodynamic instability [Fatal]
  - Polyuria [Fatal]
  - Pyrexia [Fatal]
  - Angiopathy [Fatal]
  - Coagulopathy [Fatal]
  - Septic shock [Fatal]
  - Hepatic encephalopathy [Fatal]
  - Distributive shock [Fatal]
  - Shock [Fatal]
  - Acidosis [Fatal]
  - Pleural effusion [Fatal]
  - Respiratory disorder [Fatal]
  - Hypoglycaemia [Fatal]
  - Multiple organ dysfunction syndrome [Fatal]
  - Hepatic enzyme increased [Fatal]
  - Hepatic failure [Fatal]

NARRATIVE: CASE EVENT DATE: 201705
